FAERS Safety Report 5877837-5 (Version None)
Quarter: 2008Q3

REPORT INFORMATION
  Report Type: 
  Country: None (occurrence: None)
  Receive Date: 20080911
  Receipt Date: 20080828
  Transmission Date: 20090109
  Serious: Yes (Hospitalization)
  Sender: FDA-Public Use
  Company Number: JP-ABBOTT-08P-087-0474952-00

PATIENT
  Age: 78 Year
  Sex: Male

DRUGS (6)
  1. LEUPROLIDE ACETATE [Suspect]
     Indication: PROSTATE CANCER STAGE II
     Route: 058
     Dates: start: 20060417, end: 20070913
  2. BICALUTAMIDE [Concomitant]
     Indication: PROSTATE CANCER STAGE II
     Route: 048
     Dates: start: 20060404, end: 20070920
  3. BIFIDOBACTERIUM [Concomitant]
     Indication: PROPHYLAXIS
     Dates: start: 20070728, end: 20070813
  4. BIFIDOBACTERIUM [Concomitant]
  5. FAMOTIDINE [Concomitant]
     Indication: ADVERSE REACTION
     Dates: start: 20070729, end: 20070813
  6. FAMOTIDINE [Concomitant]

REACTIONS (3)
  - HOT FLUSH [None]
  - HYPERHIDROSIS [None]
  - SUBARACHNOID HAEMORRHAGE [None]
